FAERS Safety Report 7917639-9 (Version None)
Quarter: 2011Q4

REPORT INFORMATION
  Report Type: 
  Country: None (occurrence: None)
  Receive Date: 20111116
  Receipt Date: 20111103
  Transmission Date: 20120403
  Serious: Yes (Other)
  Sender: FDA-Public Use
  Company Number: US-ELI_LILLY_AND_COMPANY-US201111002596

PATIENT
  Sex: Female

DRUGS (10)
  1. PRILOSEC [Concomitant]
  2. VICODIN [Concomitant]
  3. PRAVACHOL [Concomitant]
  4. METAMUCIL-2 [Concomitant]
  5. ALLEGRA [Concomitant]
  6. CLARITIN [Concomitant]
  7. CALCIUM VIT D [Concomitant]
  8. MULTI-VITAMIN [Concomitant]
  9. CYMBALTA [Suspect]
     Indication: ANXIETY
     Dosage: 60 MG, QD
     Dates: end: 20111027
  10. COREG [Concomitant]

REACTIONS (1)
  - BREAST CANCER RECURRENT [None]
